FAERS Safety Report 9759679 (Version 1)
Quarter: 2013Q4

REPORT INFORMATION
  Report Type: Spontaneous
  Country: US (occurrence: US)
  Receive Date: 20131216
  Receipt Date: 20131216
  Transmission Date: 20140711
  Serious: No
  Sender: FDA-Public Use
  Company Number: US-GILEAD-2010-0028624

PATIENT
  Age: 69 Year
  Sex: Female
  Weight: 54.5 kg

DRUGS (7)
  1. LETAIRIS [Suspect]
     Indication: PULMONARY ARTERIAL HYPERTENSION
     Route: 048
  2. SYNTHROID [Concomitant]
  3. CELEBREX [Concomitant]
  4. BUSPAR [Concomitant]
  5. CHOICE DM LIQ VANILLA [Concomitant]
  6. MULTIVITAMIN [Concomitant]
  7. ACIPHEX [Concomitant]

REACTIONS (1)
  - Pneumonia [Recovered/Resolved]
